FAERS Safety Report 17402774 (Version 2)
Quarter: 2020Q1

REPORT INFORMATION
  Report Type: Spontaneous
  Country: US (occurrence: US)
  Receive Date: 20200211
  Receipt Date: 20200310
  Transmission Date: 20200409
  Serious: No
  Sender: FDA-Public Use
  Company Number: US-PFIZER INC-2020056173

PATIENT
  Age: 43 Year
  Sex: Female

DRUGS (1)
  1. XELJANZ XR [Suspect]
     Active Substance: TOFACITINIB CITRATE
     Indication: RHEUMATOID ARTHRITIS
     Dosage: 11 MG, DAILY
     Route: 048
     Dates: start: 20200204, end: 20200205

REACTIONS (4)
  - Pruritus [Recovering/Resolving]
  - Pain [Unknown]
  - Fatigue [Recovering/Resolving]
  - Bite [Recovering/Resolving]

NARRATIVE: CASE EVENT DATE: 20200204
